FAERS Safety Report 7189754-1 (Version None)
Quarter: 2010Q4

REPORT INFORMATION
  Report Type: 
  Country: None (occurrence: None)
  Receive Date: 20101223
  Receipt Date: 20101215
  Transmission Date: 20110411
  Serious: No
  Sender: FDA-Public Use
  Company Number: US-BIOGENIDEC-2010BI044179

PATIENT
  Age: 50 Year
  Sex: Female

DRUGS (4)
  1. TYSABRI [Suspect]
     Indication: MULTIPLE SCLEROSIS
     Route: 042
     Dates: start: 20101110
  2. AVONEX [Concomitant]
     Indication: MULTIPLE SCLEROSIS
     Route: 030
     Dates: start: 20100301
  3. AVONEX [Concomitant]
     Route: 030
     Dates: start: 20070604, end: 20090101
  4. AVONEX [Concomitant]
     Route: 030
     Dates: start: 20011004, end: 20070111

REACTIONS (1)
  - RASH [None]
